FAERS Safety Report 16608209 (Version 1)
Quarter: 2019Q3

REPORT INFORMATION
  Report Type: Spontaneous
  Country: CN (occurrence: CN)
  Receive Date: 20190722
  Receipt Date: 20190722
  Transmission Date: 20191004
  Serious: Yes (Other)
  Sender: FDA-Public Use
  Company Number: CN-PFIZER INC-2019305564

PATIENT
  Sex: Male

DRUGS (2)
  1. LIPITOR [Suspect]
     Active Substance: ATORVASTATIN CALCIUM
     Dosage: 80 MG, 1X/DAY
     Route: 048
  2. LIPITOR [Suspect]
     Active Substance: ATORVASTATIN CALCIUM
     Indication: CEREBRAL INFARCTION
     Dosage: 60 MG, 1X/DAY
     Route: 048

REACTIONS (6)
  - Drug ineffective for unapproved indication [Unknown]
  - Muscle enzyme increased [Not Recovered/Not Resolved]
  - Off label use [Unknown]
  - Hepatic enzyme increased [Unknown]
  - Blood bilirubin increased [Not Recovered/Not Resolved]
  - Myalgia [Not Recovered/Not Resolved]
